FAERS Safety Report 6696314-5 (Version None)
Quarter: 2010Q2

REPORT INFORMATION
  Report Type: 
  Country: None (occurrence: None)
  Receive Date: 20100419
  Receipt Date: 20090706
  Transmission Date: 20101027
  Serious: No
  Sender: FDA-Public Use
  Company Number: 2009-00425

PATIENT
  Age: 61 Year
  Sex: Female
  Weight: 74.8435 kg

DRUGS (8)
  1. ZICAM COLD REMEDY GEL SWABS [Suspect]
     Dosage: SPORADIC - 3-4 YEARS; 3-4 YEARS AGO - RECENT
  2. ZICAM COLD REMEDY GEL SWABS [Suspect]
     Dosage: SPORADIC - 3-4 YEARS; 3-4 YEARS AGO - RECENT
  3. ZICAM COLD REMEDY GEL SWABS [Suspect]
     Dosage: SPORADIC - 3-4 YEARS; 3-4 YEARS AGO - RECENT
  4. ZICAM COLD REMEDY GEL SWABS [Suspect]
     Dosage: SPORADIC - 3-4 YEARS; 3-4 YEARS AGO - RECENT
  5. EVISTA [Concomitant]
  6. ZOCOR [Concomitant]
  7. CALCIUM W/VITAMIN D [Concomitant]
  8. CENTRUM MULTIVITAMIN [Concomitant]

REACTIONS (1)
  - ANOSMIA [None]
